FAERS Safety Report 8396280-0 (Version None)
Quarter: 2012Q2

REPORT INFORMATION
  Report Type: 
  Country: None (occurrence: None)
  Receive Date: 20120530
  Receipt Date: 20120515
  Transmission Date: 20120825
  Serious: Yes (Death, Other)
  Sender: FDA-Public Use
  Company Number: CH-ROCHE-1070206

PATIENT

DRUGS (1)
  1. MABTHERA [Suspect]
     Indication: SYSTEMIC SCLEROSIS

REACTIONS (4)
  - CARDIAC FAILURE [None]
  - PNEUMONIA [None]
  - SERUM SICKNESS [None]
  - INFECTION [None]
